FAERS Safety Report 22374877 (Version 2)
Quarter: 2023Q2

REPORT INFORMATION
  Report Type: Spontaneous
  Country: GB (occurrence: GB)
  Receive Date: 20230527
  Receipt Date: 20230616
  Transmission Date: 20230721
  Serious: Yes (Other)
  Sender: FDA-Public Use
  Company Number: None

PATIENT
  Age: 45 Year
  Sex: Male
  Weight: 71 kg

DRUGS (6)
  1. QUETIAPINE FUMARATE [Suspect]
     Active Substance: QUETIAPINE FUMARATE
     Indication: Product used for unknown indication
     Dosage: ROUTE OF ADMINISTRATION: OTHER
     Dates: start: 20230503
  2. TRAZODONE [Concomitant]
     Active Substance: TRAZODONE HYDROCHLORIDE
     Dosage: NIGHT
     Dates: start: 20201215
  3. EPILIM [Concomitant]
     Active Substance: VALPROATE SODIUM
     Dosage: MORNING AND EVENING.?ROUTE OF ADMINISTRATION: OTHER
     Dates: start: 20220422
  4. KETOCONAZOLE [Concomitant]
     Active Substance: KETOCONAZOLE
     Dosage: HAIR + SCALP UP TO TWICE A WEEK
     Dates: start: 20211130
  5. LACOSAMIDE [Concomitant]
     Active Substance: LACOSAMIDE
     Dates: start: 20220422
  6. MIDAZOLAM [Concomitant]
     Active Substance: MIDAZOLAM
     Indication: Seizure
     Dosage: FULL IN MOUTH (IF CONVULSION LASTS ...?ROUTE OF ADMINISTRATION: OTHER
     Dates: start: 20220920

REACTIONS (1)
  - Epilepsy [Recovered/Resolved]
